FAERS Safety Report 9101746 (Version 1)
Quarter: 2013Q1

REPORT INFORMATION
  Report Type: Spontaneous
  Country: US (occurrence: None)
  Receive Date: 20130220
  Receipt Date: 20130220
  Transmission Date: 20140127
  Serious: Yes (Other)
  Sender: FDA-Public Use
  Company Number: None

PATIENT
  Age: 39 Year
  Sex: Female
  Weight: 49.9 kg

DRUGS (1)
  1. EFFEXOR XR [Suspect]
     Dosage: 375  MGS   DAY

REACTIONS (2)
  - Psychotic disorder [None]
  - Drug withdrawal syndrome [None]
